FAERS Safety Report 22293743 (Version 1)
Quarter: 2023Q2

REPORT INFORMATION
  Report Type: Spontaneous
  Country: FI (occurrence: FI)
  Receive Date: 20230508
  Receipt Date: 20230508
  Transmission Date: 20230722
  Serious: Yes (Disabling)
  Sender: FDA-Public Use
  Company Number: None

PATIENT
  Age: 21 Year
  Sex: Female

DRUGS (1)
  1. ESCITALOPRAM [Suspect]
     Active Substance: ESCITALOPRAM OXALATE
     Indication: Generalised anxiety disorder
     Dosage: 15 MG, DAILY
     Dates: start: 201408, end: 201501

REACTIONS (4)
  - Female orgasmic disorder [Recovered/Resolved with Sequelae]
  - Sexual dysfunction [Recovered/Resolved with Sequelae]
  - Orgasmic sensation decreased [Recovered/Resolved with Sequelae]
  - Libido decreased [Recovered/Resolved with Sequelae]

NARRATIVE: CASE EVENT DATE: 20140801
